FAERS Safety Report 16609201 (Version 1)
Quarter: 2019Q3

REPORT INFORMATION
  Report Type: Spontaneous
  Country: CN (occurrence: CN)
  Receive Date: 20190722
  Receipt Date: 20190722
  Transmission Date: 20191004
  Serious: Yes (Other)
  Sender: FDA-Public Use
  Company Number: CN-009507513-1907CHN010183

PATIENT
  Age: 88 Year
  Sex: Male
  Weight: 66 kg

DRUGS (2)
  1. TIENAM [Suspect]
     Active Substance: CILASTATIN SODIUM\IMIPENEM
     Indication: SEPSIS
     Dosage: 4.5 GRAM, Q6H, TID
     Route: 042
     Dates: start: 20190626, end: 20190627
  2. SODIUM CHLORIDE. [Concomitant]
     Active Substance: SODIUM CHLORIDE
     Indication: SEPSIS
     Dosage: 100 MILLILITER, Q6H, TID
     Route: 042
     Dates: start: 20190626, end: 20190627

REACTIONS (3)
  - Delirium [Recovered/Resolved]
  - Dysphoria [Recovered/Resolved]
  - Tremor [Recovered/Resolved]

NARRATIVE: CASE EVENT DATE: 20190627
